FAERS Safety Report 20256546 (Version 6)
Quarter: 2022Q2

REPORT INFORMATION
  Report Type: Spontaneous
  Country: US (occurrence: US)
  Receive Date: 20211230
  Receipt Date: 20220628
  Transmission Date: 20220721
  Serious: No
  Sender: FDA-Public Use
  Company Number: US-PFIZER INC-202101701441

PATIENT
  Age: 66 Year
  Sex: Male

DRUGS (3)
  1. IBRANCE [Suspect]
     Active Substance: PALBOCICLIB
     Indication: Retroperitoneal cancer
     Dosage: 125 MG
     Dates: start: 20211026
  2. IBRANCE [Suspect]
     Active Substance: PALBOCICLIB
     Indication: Malignant peritoneal neoplasm
  3. IBRANCE [Suspect]
     Active Substance: PALBOCICLIB
     Indication: Breast cancer female

REACTIONS (5)
  - Fatigue [Unknown]
  - Constipation [Unknown]
  - COVID-19 [Recovered/Resolved]
  - Stomatitis [Unknown]
  - Musculoskeletal stiffness [Unknown]
